FAERS Safety Report 5978909-7 (Version None)
Quarter: 2008Q4

REPORT INFORMATION
  Report Type: 
  Country: None (occurrence: None)
  Receive Date: 20081128
  Receipt Date: 20081117
  Transmission Date: 20090506
  Serious: Yes (Death)
  Sender: FDA-Public Use
  Company Number: TCI2008A05784

PATIENT
  Age: 60 Year
  Sex: Female

DRUGS (1)
  1. TAKEPRON CAPSULES 30 (LANSOPRAZOLE) (CAPSULES) [Suspect]
     Route: 048
     Dates: start: 20070601, end: 20070801

REACTIONS (2)
  - AGRANULOCYTOSIS [None]
  - PNEUMONIA [None]
